FAERS Safety Report 24295540 (Version 1)
Quarter: 2024Q3

REPORT INFORMATION
  Report Type: Spontaneous
  Country: US (occurrence: US)
  Receive Date: 20240908
  Receipt Date: 20240908
  Transmission Date: 20241017
  Serious: No
  Sender: ELI LILLY AND CO
  Company Number: US-ELI_LILLY_AND_COMPANY-US202409003690

PATIENT
  Age: 73 Year
  Sex: Female

DRUGS (2)
  1. VERZENIO [Suspect]
     Active Substance: ABEMACICLIB
     Indication: Retroperitoneal cancer
     Dosage: UNK UNK, BID
     Route: 048
     Dates: start: 20240730
  2. VERZENIO [Suspect]
     Active Substance: ABEMACICLIB
     Dosage: UNK UNK, BID
     Route: 048
     Dates: start: 20240730

REACTIONS (1)
  - Off label use [Unknown]
